FAERS Safety Report 7926789 (Version 4)
Quarter: 2015Q4

REPORT INFORMATION
  Report Type: Spontaneous
  Country: US (occurrence: US)
  Receive Date: 20110502
  Receipt Date: 20151116
  Transmission Date: 20160305
  Serious: No
  Sender: FDA-Public Use
  Company Number: US-ASTRAZENECA-2011SE10269

PATIENT
  Age: 73 Year
  Sex: Female

DRUGS (4)
  1. NEXIUM [Suspect]
     Active Substance: ESOMEPRAZOLE MAGNESIUM
     Route: 048
  2. TOPROL XL [Suspect]
     Active Substance: METOPROLOL SUCCINATE
     Indication: CARDIAC DISORDER
     Route: 048
  3. SEROQUEL [Suspect]
     Active Substance: QUETIAPINE FUMARATE
     Route: 048
  4. SEROQUEL [Suspect]
     Active Substance: QUETIAPINE FUMARATE
     Route: 048

REACTIONS (18)
  - Vertigo [Unknown]
  - Rheumatoid arthritis [Unknown]
  - Cardiac disorder [Unknown]
  - Nervousness [Unknown]
  - Osteopenia [Unknown]
  - Muscle disorder [Unknown]
  - Malaise [Not Recovered/Not Resolved]
  - Alopecia [Unknown]
  - Bursitis [Unknown]
  - Inner ear disorder [Unknown]
  - Poor peripheral circulation [Unknown]
  - Gastrooesophageal reflux disease [Unknown]
  - Gait disturbance [Unknown]
  - Fatigue [Unknown]
  - Breast pain [Unknown]
  - Sciatica [Unknown]
  - Dizziness [Unknown]
  - Arthritis [Unknown]
